FAERS Safety Report 8817060 (Version 1)
Quarter: 2012Q4

REPORT INFORMATION
  Report Type: Spontaneous
  Country: US (occurrence: None)
  Receive Date: 20121003
  Receipt Date: 20121003
  Transmission Date: 20130627
  Serious: Yes (Other)
  Sender: FDA-Public Use
  Company Number: None

PATIENT
  Age: 45 Year
  Sex: Female

DRUGS (1)
  1. ACTHAR [Suspect]
     Dosage: 80 units, subq
     Route: 058
     Dates: start: 20120718

REACTIONS (1)
  - Swelling [None]
